FAERS Safety Report 8169773-9 (Version None)
Quarter: 2012Q1

REPORT INFORMATION
  Report Type: 
  Country: None (occurrence: None)
  Receive Date: 20120228
  Receipt Date: 20120221
  Transmission Date: 20120608
  Serious: Yes (Hospitalization)
  Sender: FDA-Public Use
  Company Number: US-CELGENEUS-163-50794-12022477

PATIENT
  Age: 66 Year
  Sex: Female
  Weight: 64.9 kg

DRUGS (7)
  1. MYLOTARG [Suspect]
     Dosage: 3 MILLIGRAM/SQ. METER
     Route: 041
     Dates: start: 20111004, end: 20111011
  2. LEVOTHYROXINE SODIUM [Concomitant]
     Route: 065
  3. LIPITOR [Concomitant]
     Route: 065
  4. VIDAZA [Suspect]
     Dosage: 75 MILLIGRAM/SQ. METER
     Route: 065
     Dates: start: 20111004, end: 20111010
  5. ZOLINZA [Suspect]
     Dosage: 400 MILLIGRAM
     Route: 048
     Dates: start: 20111004, end: 20111012
  6. DIPHENHYDRAMINE HCL [Concomitant]
     Route: 065
  7. HYDROCODONE [Concomitant]
     Route: 065

REACTIONS (6)
  - PNEUMONITIS [None]
  - FEBRILE NEUTROPENIA [None]
  - WHITE BLOOD CELL COUNT DECREASED [None]
  - CARDIAC FAILURE [None]
  - PLEURAL EFFUSION [None]
  - INJECTION SITE REACTION [None]
